FAERS Safety Report 10702570 (Version 2)
Quarter: 2018Q1

REPORT INFORMATION
  Report Type: Spontaneous
  Country: US (occurrence: US)
  Receive Date: 20150109
  Receipt Date: 20180309
  Transmission Date: 20180508
  Serious: No
  Sender: FDA-Public Use
  Company Number: US-PFIZER INC-2015004934

PATIENT
  Age: 70 Year
  Sex: Female
  Weight: 97 kg

DRUGS (4)
  1. METFORMIN [Concomitant]
     Active Substance: METFORMIN HYDROCHLORIDE
     Indication: DIABETES MELLITUS
     Dosage: 1000 MG, 2X/DAY
  2. LYRICA [Suspect]
     Active Substance: PREGABALIN
     Indication: DIABETIC NEUROPATHY
     Dosage: UNK
     Dates: end: 201802
  3. LYRICA [Suspect]
     Active Substance: PREGABALIN
     Dosage: 300 MG, TWICE A DAY
     Dates: start: 2018
  4. GLIPIZIDE. [Concomitant]
     Active Substance: GLIPIZIDE
     Indication: DIABETES MELLITUS
     Dosage: 10 MG, 2X/DAY [2 TABLETS TWICE A DAY]

REACTIONS (11)
  - Gait disturbance [Unknown]
  - Balance disorder [Unknown]
  - Gastric disorder [Unknown]
  - Pain [Not Recovered/Not Resolved]
  - Weight decreased [Unknown]
  - Tooth loss [Unknown]
  - Sinus disorder [Unknown]
  - Labyrinthitis [Unknown]
  - Feeling abnormal [Unknown]
  - Pain in extremity [Unknown]
  - Drug ineffective [Unknown]
